FAERS Safety Report 5646850-5 (Version None)
Quarter: 2008Q1

REPORT INFORMATION
  Report Type: 
  Country: None (occurrence: None)
  Receive Date: 20080229
  Receipt Date: 20080229
  Transmission Date: 20080703
  Serious: Yes (Other)
  Sender: FDA-Public Use
  Company Number: None

PATIENT
  Sex: Male
  Weight: 90.7194 kg

DRUGS (4)
  1. CHANTIX [Suspect]
     Indication: SMOKING CESSATION THERAPY
     Dosage: ? ONCE QD ORAL
     Route: 048
     Dates: start: 20080201
  2. VISTARIL [Concomitant]
  3. ABILIFY [Concomitant]
  4. PROZAC [Concomitant]

REACTIONS (2)
  - ABNORMAL BEHAVIOUR [None]
  - ANGER [None]
